FAERS Safety Report 9709257 (Version 2)
Quarter: 2013Q4

REPORT INFORMATION
  Report Type: Report from Study
  Country: DE (occurrence: DE)
  Receive Date: 20131125
  Receipt Date: 20131211
  Transmission Date: 20140711
  Serious: Yes (Hospitalization)
  Sender: FDA-Public Use
  Company Number: DE-ABBVIE-13P-062-1169784-00

PATIENT
  Sex: Female
  Weight: 64 kg

DRUGS (3)
  1. HUMIRA [Suspect]
     Indication: RHEUMATOID ARTHRITIS
     Route: 058
     Dates: start: 20120306
  2. CALCILAC [Concomitant]
     Indication: OSTEOPOROSIS
  3. PROTELOS [Concomitant]
     Indication: OSTEOPOROSIS

REACTIONS (1)
  - Cardiac disorder [Recovered/Resolved]
